FAERS Safety Report 24770707 (Version 2)
Quarter: 2025Q3

REPORT INFORMATION
  Report Type: Report from Study
  Country: US (occurrence: US)
  Receive Date: 20241224
  Receipt Date: 20250818
  Transmission Date: 20251021
  Serious: Yes (Hospitalization, Other)
  Sender: SANOFI AVENTIS
  Company Number: US-SA-2024SA254325

PATIENT
  Age: 73 Year
  Sex: Male

DRUGS (18)
  1. DUPILUMAB [Suspect]
     Active Substance: DUPILUMAB
     Indication: Dermatitis atopic
     Dates: start: 20240721, end: 20240721
  2. DUPILUMAB [Suspect]
     Active Substance: DUPILUMAB
     Dosage: 300 MG, QOW
     Route: 058
     Dates: start: 2024
  3. METOPROLOL [Concomitant]
     Active Substance: METOPROLOL
  4. WARFARIN [Concomitant]
     Active Substance: WARFARIN
  5. RANEXA [Concomitant]
     Active Substance: RANOLAZINE
  6. PLAVIX [Concomitant]
     Active Substance: CLOPIDOGREL BISULFATE
  7. FUROSEMIDE [Concomitant]
     Active Substance: FUROSEMIDE
  8. MEXITIL [Concomitant]
     Active Substance: MEXILETINE HYDROCHLORIDE
  9. JARDIANCE [Concomitant]
     Active Substance: EMPAGLIFLOZIN
  10. HYDROCODONE [Concomitant]
     Active Substance: HYDROCODONE
  11. BACLOFEN [Concomitant]
     Active Substance: BACLOFEN
  12. NITROGLYCERIN [Concomitant]
     Active Substance: NITROGLYCERIN
  13. ATORVASTATIN [Concomitant]
     Active Substance: ATORVASTATIN
  14. AMIODARONE [Concomitant]
     Active Substance: AMIODARONE
  15. ALPRAZOLAM [Concomitant]
     Active Substance: ALPRAZOLAM
  16. LASIX [Concomitant]
     Active Substance: FUROSEMIDE
  17. SPIRONOLACTONE [Concomitant]
     Active Substance: SPIRONOLACTONE
  18. ISOSORBIDE [Concomitant]
     Active Substance: ISOSORBIDE

REACTIONS (6)
  - Myocardial infarction [Recovered/Resolved]
  - Chronic obstructive pulmonary disease [Unknown]
  - Bradycardia [Unknown]
  - Palpitations [Unknown]
  - Pruritus [Unknown]
  - Injection site pain [Recovered/Resolved]

NARRATIVE: CASE EVENT DATE: 20240721
